FAERS Safety Report 24608624 (Version 1)
Quarter: 2024Q4

REPORT INFORMATION
  Report Type: Spontaneous
  Country: US (occurrence: US)
  Receive Date: 20241112
  Receipt Date: 20241112
  Transmission Date: 20250114
  Serious: No
  Sender: BAYER HEALTHCARE PHARMACEUTICALS INC.
  Company Number: US-BAYER-2024A160720

PATIENT
  Age: 40 Year
  Sex: Male

DRUGS (1)
  1. GADAVIST [Suspect]
     Active Substance: GADOBUTROL
     Dosage: UNK

REACTIONS (3)
  - Paraesthesia [None]
  - Pharyngeal paraesthesia [None]
  - Urticaria [None]

NARRATIVE: CASE EVENT DATE: 20241108
